FAERS Safety Report 14785243 (Version 1)
Quarter: 2018Q2

REPORT INFORMATION
  Report Type: Spontaneous
  Country: US (occurrence: US)
  Receive Date: 20180420
  Receipt Date: 20180420
  Transmission Date: 20180711
  Serious: Yes (Hospitalization)
  Sender: FDA-Public Use
  Company Number: US-PERRIGO-18US003949

PATIENT
  Age: 13 Year
  Sex: Female

DRUGS (1)
  1. MORPHINE SULFATE. [Suspect]
     Active Substance: MORPHINE SULFATE
     Indication: DRUG USE DISORDER
     Dosage: UNKNOWN, UNKNOWN
     Route: 048

REACTIONS (5)
  - Acute kidney injury [Recovered/Resolved]
  - Acute respiratory distress syndrome [Recovered/Resolved]
  - Acute chest syndrome [Recovered/Resolved]
  - Respiratory failure [Recovered/Resolved]
  - Posterior reversible encephalopathy syndrome [Recovered/Resolved]
